FAERS Safety Report 4759222-2 (Version None)
Quarter: 2005Q3

REPORT INFORMATION
  Report Type: 
  Country: None (occurrence: None)
  Receive Date: 20050831
  Receipt Date: 20050816
  Transmission Date: 20060218
  Serious: No
  Sender: FDA-Public Use
  Company Number: 2005-131530-NL

PATIENT
  Age: 45 Year
  Sex: Female

DRUGS (1)
  1. MARVELON DESOGESTREL/ETHINYLESTRADIOL [Suspect]
     Dosage: DF ORAL
     Route: 048
     Dates: start: 19990101

REACTIONS (10)
  - ADENOMA BENIGN [None]
  - ARTHROPATHY [None]
  - CONNECTIVE TISSUE DISORDER [None]
  - LOCALISED OEDEMA [None]
  - OEDEMA PERIPHERAL [None]
  - PROLACTIN-PRODUCING PITUITARY TUMOUR [None]
  - PURPURA [None]
  - RAYNAUD'S PHENOMENON [None]
  - SKIN LESION [None]
  - SYSTEMIC LUPUS ERYTHEMATOSUS [None]
